FAERS Safety Report 20375100 (Version 1)
Quarter: 2022Q1

REPORT INFORMATION
  Report Type: Spontaneous
  Country: US (occurrence: US)
  Receive Date: 20220125
  Receipt Date: 20220125
  Transmission Date: 20220423
  Serious: Yes (Disabling, Other)
  Sender: FDA-Public Use
  Company Number: US-SA-SAC20220120000173

PATIENT
  Age: 68 Year
  Sex: Male

DRUGS (2)
  1. KEVZARA [Suspect]
     Active Substance: SARILUMAB
     Indication: Psoriatic arthropathy
     Route: 058
     Dates: start: 20210212
  2. XELJANZ [Concomitant]
     Active Substance: TOFACITINIB CITRATE

REACTIONS (11)
  - Psoriatic arthropathy [Unknown]
  - Walking aid user [Unknown]
  - Arthralgia [Unknown]
  - Joint swelling [Unknown]
  - Gait disturbance [Unknown]
  - Joint stiffness [Unknown]
  - Psoriasis [Unknown]
  - COVID-19 [Unknown]
  - Rhinorrhoea [Unknown]
  - SARS-CoV-2 test positive [Unknown]
  - Drug ineffective [Unknown]
